FAERS Safety Report 5232405-3 (Version None)
Quarter: 2007Q1

REPORT INFORMATION
  Report Type: 
  Country: None (occurrence: None)
  Receive Date: 20070205
  Receipt Date: 20070124
  Transmission Date: 20070707
  Serious: Yes (Life-Threatening, Hospitalization)
  Sender: FDA-Public Use
  Company Number: 2006-03206

PATIENT
  Age: 59 Year
  Sex: Male
  Weight: 95 kg

DRUGS (1)
  1. VELCADE [Suspect]
     Indication: MULTIPLE MYELOMA
     Dosage: INTRAVENOUS
     Route: 042
     Dates: start: 20061121, end: 20061123

REACTIONS (5)
  - CARDIAC ARREST [None]
  - CONVULSION [None]
  - GUILLAIN-BARRE SYNDROME [None]
  - SINOATRIAL BLOCK [None]
  - SYNCOPE [None]
